FAERS Safety Report 4409381-6 (Version None)
Quarter: 2004Q3

REPORT INFORMATION
  Report Type: 
  Country: None (occurrence: None)
  Receive Date: 20040727
  Receipt Date: 20040727
  Transmission Date: 20050211
  Serious: Yes (Life-Threatening)
  Sender: FDA-Public Use
  Company Number: None

PATIENT
  Age: 88 Year
  Sex: Female
  Weight: 92 kg

DRUGS (11)
  1. PHENYTOIN [Suspect]
     Indication: CONVULSION
     Dosage: 200 MG BID PO/CHRONIC UNTIL 1/3/04
     Route: 048
     Dates: end: 20040103
  2. ZYPREXA [Concomitant]
  3. ASPIRIN [Concomitant]
  4. CLOPIDOGREL [Concomitant]
  5. MICARDIS [Concomitant]
  6. PANTOPRAZOLE [Concomitant]
  7. ALLOPURINOL [Concomitant]
  8. ZOCOR [Concomitant]
  9. TRAZODONE HCL [Concomitant]
  10. TRAMADOL HCL [Concomitant]
  11. LOTREL [Concomitant]

REACTIONS (9)
  - ALANINE AMINOTRANSFERASE INCREASED [None]
  - ASPARTATE AMINOTRANSFERASE INCREASED [None]
  - BLOOD ALKALINE PHOSPHATASE INCREASED [None]
  - HAEMATOCRIT DECREASED [None]
  - HAEMOGLOBIN DECREASED [None]
  - LIVER FUNCTION TEST ABNORMAL [None]
  - MENTAL STATUS CHANGES [None]
  - PANCREATITIS [None]
  - STEVENS-JOHNSON SYNDROME [None]
